FAERS Safety Report 17929674 (Version 5)
Quarter: 2021Q4

REPORT INFORMATION
  Report Type: Spontaneous
  Country: US (occurrence: US)
  Receive Date: 20200623
  Receipt Date: 20211208
  Transmission Date: 20220303
  Serious: No
  Sender: FDA-Public Use
  Company Number: US-PFIZER INC-2019135315

PATIENT
  Age: 61 Year
  Sex: Female
  Weight: 84.82 kg

DRUGS (5)
  1. LYRICA [Suspect]
     Active Substance: PREGABALIN
     Indication: Sciatica
     Dosage: 200 MG, DAILY [50 MG IN THE MORNING AND 150 MG AT BEDTIME]
     Route: 048
     Dates: start: 20190225
  2. LYRICA [Suspect]
     Active Substance: PREGABALIN
     Indication: Back pain
     Dosage: 200 MG, DAILY (150 MG [1 CAPSULE] AT BEDTIME, 50 MG [1 CAPSULE] AT BEDTIME)
     Route: 048
  3. LYRICA [Suspect]
     Active Substance: PREGABALIN
     Indication: Anxiety
     Dosage: 200 MG, DAILY (ONE CAPSULE BY MOUTH IN THE MORNING AND TAKE THREE BY MOUTH AT BEDTIME)
     Route: 048
  4. LYRICA [Suspect]
     Active Substance: PREGABALIN
     Indication: Neuropathy peripheral
     Dosage: 50 MG, 2X/DAY (1 PO IN THE MORNING AND 1 PO ON THE AFTERNOON)
  5. LYRICA [Suspect]
     Active Substance: PREGABALIN
     Indication: Groin pain
     Dosage: 50 MG (1 PO IN THE MORNING AND 1 PO ON THE AFTERNOON WITH 150 MG CAP AT BEDTIME)

REACTIONS (10)
  - Intentional product use issue [Unknown]
  - Body height decreased [Unknown]
  - Hypoacusis [Unknown]
  - Movement disorder [Unknown]
  - Dysgraphia [Unknown]
  - Malaise [Unknown]
  - Pain [Unknown]
  - Condition aggravated [Unknown]
  - Neuralgia [Unknown]
  - Hypersensitivity [Unknown]

NARRATIVE: CASE EVENT DATE: 20200618
